FAERS Safety Report 4381720-4 (Version None)
Quarter: 2004Q2

REPORT INFORMATION
  Report Type: 
  Country: None (occurrence: None)
  Receive Date: 20040603
  Receipt Date: 20031003
  Transmission Date: 20050107
  Serious: Yes (Other)
  Sender: FDA-Public Use
  Company Number: 200316679US

PATIENT
  Age: 83 Year
  Sex: Female
  Weight: 67 kg

DRUGS (10)
  1. LOVENOX [Suspect]
     Indication: ACUTE CORONARY SYNDROME
     Dosage: 70 MG Q12H SC
     Route: 058
     Dates: start: 20030417, end: 20030420
  2. LOVENOX [Suspect]
     Indication: ANGINA UNSTABLE
     Dosage: 70 MG Q12H SC
     Route: 058
     Dates: start: 20030417, end: 20030420
  3. ASPIRIN [Concomitant]
  4. METOPROLOL TARTRATE (LOPRESSOR) [Concomitant]
  5. PANTOPRAZOLE SODIUM [Concomitant]
  6. DOCUSATE CALCIUM (SURFAK) [Concomitant]
  7. PLAVIX [Concomitant]
  8. PRAZOSIN HCL [Concomitant]
  9. SIMVASTATIN [Concomitant]
  10. NITROGLYCERIN [Concomitant]

REACTIONS (1)
  - ABDOMINAL HAEMATOMA [None]
